FAERS Safety Report 21905840 (Version 1)
Quarter: 2023Q1

REPORT INFORMATION
  Report Type: Spontaneous
  Country: GR (occurrence: GR)
  Receive Date: 20230124
  Receipt Date: 20230124
  Transmission Date: 20230417
  Serious: Yes (Other)
  Sender: FDA-Public Use
  Company Number: GR-LEO Pharma-348574

PATIENT
  Age: 50 Year
  Sex: Male

DRUGS (1)
  1. BRODALUMAB [Suspect]
     Active Substance: BRODALUMAB
     Indication: Psoriasis
     Route: 065

REACTIONS (4)
  - Blindness [Unknown]
  - Eye pain [Unknown]
  - Headache [Unknown]
  - Nausea [Unknown]
